FAERS Safety Report 14430623 (Version 1)
Quarter: 2018Q1

REPORT INFORMATION
  Report Type: Spontaneous
  Country: US (occurrence: US)
  Receive Date: 20180123
  Receipt Date: 20180123
  Transmission Date: 20180509
  Serious: Yes (Life-Threatening, Hospitalization)
  Sender: FDA-Public Use
  Company Number: None

PATIENT
  Age: 57 Year
  Sex: Male
  Weight: 96 kg

DRUGS (6)
  1. MAGNESIUM SULFATE. [Concomitant]
     Active Substance: MAGNESIUM SULFATE
  2. VARUBI [Suspect]
     Active Substance: ROLAPITANT
     Indication: PROPHYLAXIS OF NAUSEA AND VOMITING
     Dosage: ONCE BEFORE CHEMO; INTRAVENOUS?
     Route: 042
     Dates: start: 20180102, end: 20180102
  3. DEXAMETHASONE. [Concomitant]
     Active Substance: DEXAMETHASONE
  4. VARUBI [Suspect]
     Active Substance: ROLAPITANT
     Indication: LUNG NEOPLASM MALIGNANT
     Dosage: ONCE BEFORE CHEMO; INTRAVENOUS?
     Route: 042
     Dates: start: 20180102, end: 20180102
  5. NORMAL SALINE [Concomitant]
     Active Substance: SODIUM CHLORIDE
  6. PALONOSETRON. [Concomitant]
     Active Substance: PALONOSETRON HYDROCHLORIDE

REACTIONS (6)
  - Pruritus [None]
  - Wheezing [None]
  - Dyspnoea [None]
  - Flushing [None]
  - Blood pressure decreased [None]
  - Oxygen saturation decreased [None]

NARRATIVE: CASE EVENT DATE: 20180102
